FAERS Safety Report 17911798 (Version 1)
Quarter: 2020Q2

REPORT INFORMATION
  Report Type: Spontaneous
  Country: US (occurrence: US)
  Receive Date: 20200617
  Receipt Date: 20200617
  Transmission Date: 20200714
  Serious: Yes (Disabling, Other)
  Sender: FDA-Public Use
  Company Number: None

PATIENT
  Sex: Female
  Weight: 105.23 kg

DRUGS (4)
  1. METFORMIN ER 500MG 24 HR TABS [Suspect]
     Active Substance: METFORMIN HYDROCHLORIDE
     Indication: DIABETES MELLITUS
     Dosage: ?          QUANTITY:1 TABLET;?
     Route: 048
     Dates: start: 2012, end: 2016
  2. METFORMIN 500MG [Suspect]
     Active Substance: METFORMIN HYDROCHLORIDE
  3. LISINOPRIL\ HCTZ 20/25 [Concomitant]
  4. FARXIGA [Suspect]
     Active Substance: DAPAGLIFLOZIN PROPANEDIOL

REACTIONS (8)
  - Anger [None]
  - Alopecia [None]
  - Vomiting [None]
  - Loss of consciousness [None]
  - Migraine [None]
  - Weight decreased [None]
  - Vaginal infection [None]
  - Rash [None]
